FAERS Safety Report 18408321 (Version 1)
Quarter: 2020Q4

REPORT INFORMATION
  Report Type: Spontaneous
  Country: US (occurrence: US)
  Receive Date: 20201020
  Receipt Date: 20201020
  Transmission Date: 20210114
  Serious: Yes (Other)
  Sender: FDA-Public Use
  Company Number: US-GE HEALTHCARE LIFE SCIENCES-2020CSU005288

PATIENT
  Sex: Female

DRUGS (3)
  1. OMNISCAN [Suspect]
     Active Substance: GADODIAMIDE
     Indication: COLITIS
  2. OMNISCAN [Suspect]
     Active Substance: GADODIAMIDE
     Indication: MAGNETIC RESONANCE IMAGING ABDOMINAL
     Dosage: UNK UNK, SINGLE
     Route: 042
     Dates: start: 2002, end: 2002
  3. OMNISCAN [Suspect]
     Active Substance: GADODIAMIDE
     Indication: VENOUS THROMBOSIS

REACTIONS (1)
  - Nephrogenic systemic fibrosis [Unknown]

NARRATIVE: CASE EVENT DATE: 2003
